FAERS Safety Report 5918991-6 (Version None)
Quarter: 2008Q4

REPORT INFORMATION
  Report Type: 
  Country: None (occurrence: None)
  Receive Date: 20081015
  Receipt Date: 20081010
  Transmission Date: 20090506
  Serious: Yes (Hospitalization)
  Sender: FDA-Public Use
  Company Number: JP-ABBOTT-08P-087-0481099-00

PATIENT
  Age: 64 Year
  Sex: Female

DRUGS (3)
  1. EURODIN [Suspect]
     Indication: INSOMNIA
     Route: 048
     Dates: start: 20080630
  2. LOXOPROFEN [Suspect]
     Indication: DRUG USE FOR UNKNOWN INDICATION
     Route: 048
  3. REBAMIPIDE [Suspect]
     Indication: DRUG USE FOR UNKNOWN INDICATION
     Route: 048

REACTIONS (1)
  - HEPATITIS ACUTE [None]
